FAERS Safety Report 16437786 (Version 2)
Quarter: 2019Q2

REPORT INFORMATION
  Report Type: Spontaneous
  Country: CA (occurrence: CA)
  Receive Date: 20190616
  Receipt Date: 20190625
  Transmission Date: 20190711
  Serious: Yes (Other)
  Sender: FDA-Public Use
  Company Number: PHHY2019CA136745

PATIENT
  Sex: Male

DRUGS (1)
  1. EZETIMIBE SANDOZ [Suspect]
     Active Substance: EZETIMIBE
     Indication: BLOOD CHOLESTEROL
     Dosage: UNK
     Route: 065

REACTIONS (7)
  - Dry mouth [Unknown]
  - Chapped lips [Unknown]
  - Lip swelling [Unknown]
  - Angioedema [Unknown]
  - Rash [Unknown]
  - Anaphylactic reaction [Unknown]
  - Urticaria [Unknown]
